FAERS Safety Report 22198473 (Version 1)
Quarter: 2023Q2

REPORT INFORMATION
  Report Type: Spontaneous
  Country: KR (occurrence: KR)
  Receive Date: 20230411
  Receipt Date: 20230411
  Transmission Date: 20230721
  Serious: Yes (Other)
  Sender: FDA-Public Use
  Company Number: KR-APIL-2311017US

PATIENT
  Sex: Male

DRUGS (1)
  1. BIMATOPROST\TIMOLOL [Suspect]
     Active Substance: BIMATOPROST\TIMOLOL
     Indication: Intraocular pressure increased
     Route: 031

REACTIONS (2)
  - Respiratory disorder [Recovering/Resolving]
  - Cough [Recovering/Resolving]
